FAERS Safety Report 5019689-1 (Version None)
Quarter: 2006Q2

REPORT INFORMATION
  Report Type: 
  Country: None (occurrence: None)
  Receive Date: 20060601
  Receipt Date: 20060523
  Transmission Date: 20061013
  Serious: Yes (Other)
  Sender: FDA-Public Use
  Company Number: 2006067951

PATIENT
  Age: 54 Year
  Sex: Female
  Weight: 64.4108 kg

DRUGS (4)
  1. LYRICA [Suspect]
     Indication: NEURALGIA
     Dosage: 300 MG (150 MG, 2 IN 1 D), ORAL
     Route: 048
     Dates: start: 20060201
  2. CYMBALTA [Concomitant]
  3. IBUPROFEN [Concomitant]
  4. AMBIEN [Concomitant]

REACTIONS (13)
  - ASTHENIA [None]
  - DACRYOSTENOSIS ACQUIRED [None]
  - EYE DISCHARGE [None]
  - FATIGUE [None]
  - FIBROSIS [None]
  - GAIT DISTURBANCE [None]
  - HYPOREFLEXIA [None]
  - INTERVERTEBRAL DISC PROTRUSION [None]
  - MYDRIASIS [None]
  - PAIN IN EXTREMITY [None]
  - SCAR [None]
  - VISION BLURRED [None]
  - WEIGHT INCREASED [None]
